FAERS Safety Report 5067740-5 (Version None)
Quarter: 2006Q3

REPORT INFORMATION
  Report Type: 
  Country: None (occurrence: None)
  Receive Date: 20060706
  Receipt Date: 20060307
  Transmission Date: 20061208
  Serious: No
  Sender: FDA-Public Use
  Company Number: 200512712BWH

PATIENT
  Age: 31 Year
  Sex: Male
  Weight: 72.5755 kg

DRUGS (1)
  1. LEVITRA [Suspect]
     Indication: ERECTILE DYSFUNCTION
     Dosage: 10 MG ONCE ORAL
     Route: 048
     Dates: start: 20051018

REACTIONS (5)
  - BLISTER INFECTED [None]
  - HERPES SIMPLEX [None]
  - PAIN OF SKIN [None]
  - PRURITUS [None]
  - RASH [None]
